FAERS Safety Report 15113070 (Version 2)
Quarter: 2018Q3

REPORT INFORMATION
  Report Type: Report from Study
  Country: IT (occurrence: IT)
  Receive Date: 20180706
  Receipt Date: 20180712
  Transmission Date: 20181010
  Serious: Yes (Hospitalization)
  Sender: FDA-Public Use
  Company Number: IT-TEVA-2018-IT-917717

PATIENT
  Age: 82 Year
  Sex: Female

DRUGS (12)
  1. ENALAPRIL [Suspect]
     Active Substance: ENALAPRIL
     Indication: HYPERTENSION
     Dosage: 20 MILLIGRAM DAILY;
     Route: 065
  2. MADOPAR 100 MG + 25 MG CAPSULE RIGIDE [Concomitant]
     Route: 048
  3. MOTILEX 0,5 MG COMPRESSE [Concomitant]
     Route: 048
     Dates: end: 20141214
  4. LENTO?KALIUM? [Concomitant]
     Route: 048
  5. CONCOR 10 MG COMPRESSE [Suspect]
     Active Substance: BISOPROLOL FUMARATE
     Dosage: 1 DOSAGE FORMS DAILY;
     Route: 065
  6. TIKLID 250 MG COMPRESSE RIVESTITE [Concomitant]
     Active Substance: TICLOPIDINE HYDROCHLORIDE
     Route: 048
  7. LANSOPRAZOLE. [Concomitant]
     Active Substance: LANSOPRAZOLE
     Route: 048
  8. ESIDREX [Suspect]
     Active Substance: HYDROCHLOROTHIAZIDE
     Dosage: 12.5 MILLIGRAM DAILY;
     Route: 065
  9. FISIOTENS 0,4 MG COMPRESSE RIVESTITE CON FILM [Suspect]
     Active Substance: MOXONIDINE
     Dosage: 1 DOSAGE FORMS DAILY;
     Route: 065
  10. REMERON [Suspect]
     Active Substance: MIRTAZAPINE
     Dosage: 1 DOSAGE FORMS DAILY;
     Route: 065
  11. NORVASC [Suspect]
     Active Substance: AMLODIPINE BESYLATE
     Indication: HYPERTENSION
     Dosage: 1 DOSAGE FORMS DAILY;
     Route: 065
  12. TORVAST 10 MG COMPRESSE MASTICABILI [Concomitant]
     Indication: DYSLIPIDAEMIA
     Route: 048
     Dates: end: 20141214

REACTIONS (5)
  - Dehydration [Recovered/Resolved]
  - Medication error [Recovered/Resolved]
  - Hyponatraemia [Recovered/Resolved]
  - Sinus bradycardia [Recovered/Resolved]
  - Hypotension [Recovered/Resolved]

NARRATIVE: CASE EVENT DATE: 20141214
